FAERS Safety Report 9511002 (Version 1)
Quarter: 2013Q1

REPORT INFORMATION
  Report Type: Spontaneous
  Country: US (occurrence: None)
  Receive Date: 20130305
  Receipt Date: 20130305
  Transmission Date: 20140127
  Serious: Yes (Other)
  Sender: FDA-Public Use
  Company Number: 163-21880-12021369

PATIENT
  Age: 57 Year
  Sex: Male
  Weight: 142.88 kg

DRUGS (14)
  1. REVLIMID (LENALIDOMIDE) (25 MILLIGRAM, CAPSULES) [Suspect]
     Indication: PLASMA CELL MYELOMA
     Dosage: 25 MG, 21/7, PO
     Route: 048
     Dates: start: 20111219
  2. CRESTOR (ROSUVASTATIN) [Concomitant]
  3. COREG (CARVEDILOL) [Concomitant]
  4. COUMADIN (WARFARIN SODIUM) [Concomitant]
  5. LORTAB (VICODIN) [Concomitant]
  6. MUSCLE RELAXER (MUSCLE RELAXANTS) [Concomitant]
  7. PROTONIX [Concomitant]
  8. VELCADE (BORTEZOMIB) [Concomitant]
  9. STOOL SOFTENER (DOCUSATE SODIUM) [Concomitant]
  10. MIRALAX [Concomitant]
  11. MVI (MVI) [Concomitant]
  12. VITAMIN D (ERGOCALCIFEROL) [Concomitant]
  13. LEVOTHYROXINE (LEVOTHYROXINE) [Concomitant]
  14. BENADRYL (DIPHENHYDRAMINE HYDROCHLORIDE) [Concomitant]

REACTIONS (2)
  - Hypokalaemia [None]
  - Neutropenia [None]
